FAERS Safety Report 21181437 (Version 6)
Quarter: 2022Q4

REPORT INFORMATION
  Report Type: Spontaneous
  Country: US (occurrence: US)
  Receive Date: 20220806
  Receipt Date: 20221221
  Transmission Date: 20230113
  Serious: No
  Sender: FDA-Public Use
  Company Number: US-SA-SAC20220801000864

PATIENT
  Age: 30 Year
  Sex: Female

DRUGS (8)
  1. DUPIXENT [Suspect]
     Active Substance: DUPILUMAB
     Indication: Asthma
     Dosage: 300 MG, QOW
     Route: 058
     Dates: start: 20220322
  2. DUPIXENT [Suspect]
     Active Substance: DUPILUMAB
     Indication: Immunoglobulins increased
  3. BUDESONIDE [Concomitant]
     Active Substance: BUDESONIDE
  4. SINGULAIR [Concomitant]
     Active Substance: MONTELUKAST SODIUM
  5. OMEPRAZOLE [Concomitant]
     Active Substance: OMEPRAZOLE
  6. FAMOTIDINE [Concomitant]
     Active Substance: FAMOTIDINE
  7. VITAMIN D3 [Concomitant]
     Active Substance: CHOLECALCIFEROL
  8. CYANOCOBALAMIN [Concomitant]
     Active Substance: CYANOCOBALAMIN

REACTIONS (14)
  - Dry skin [Unknown]
  - Skin erosion [Unknown]
  - Dyspnoea [Unknown]
  - Erythema of eyelid [Unknown]
  - Skin burning sensation [Unknown]
  - Ocular hyperaemia [Not Recovered/Not Resolved]
  - Erythema [Unknown]
  - Eye inflammation [Unknown]
  - Rash [Unknown]
  - Eye pruritus [Not Recovered/Not Resolved]
  - Dry eye [Unknown]
  - Conjunctivitis [Unknown]
  - Product use in unapproved indication [Unknown]
  - Therapeutic response decreased [Unknown]

NARRATIVE: CASE EVENT DATE: 20220322
